FAERS Safety Report 17030822 (Version 1)
Quarter: 2019Q4

REPORT INFORMATION
  Report Type: Spontaneous
  Country: US (occurrence: US)
  Receive Date: 20191113
  Receipt Date: 20191113
  Transmission Date: 20200122
  Serious: Yes (Other)
  Sender: FDA-Public Use
  Company Number: None

PATIENT
  Age: 55 Year
  Sex: Male
  Weight: 77.1 kg

DRUGS (6)
  1. MIDAZOLAM [Concomitant]
     Active Substance: MIDAZOLAM HYDROCHLORIDE
     Dates: start: 20191111, end: 20191111
  2. FENTANYL. [Concomitant]
     Active Substance: FENTANYL
     Dates: start: 20191111, end: 20191111
  3. VERAPAMIL [Concomitant]
     Active Substance: VERAPAMIL HYDROCHLORIDE
     Dates: start: 20191111, end: 20191111
  4. HEPARIN [Suspect]
     Active Substance: HEPARIN SODIUM
     Indication: CATHETERISATION CARDIAC
     Dosage: ?          OTHER FREQUENCY:Q30MIN;?
     Route: 040
     Dates: start: 20191111, end: 20191111
  5. IOHEXOL [Concomitant]
     Active Substance: IOHEXOL
     Dates: start: 20191111, end: 20191111
  6. NITROGLYCERIN. [Concomitant]
     Active Substance: NITROGLYCERIN
     Dates: start: 20191111, end: 20191111

REACTIONS (2)
  - Anticoagulation drug level below therapeutic [None]
  - Cardiac procedure complication [None]

NARRATIVE: CASE EVENT DATE: 20191111
